FAERS Safety Report 20713046 (Version 1)
Quarter: 2022Q2

REPORT INFORMATION
  Report Type: Report from Study
  Country: IT (occurrence: IT)
  Receive Date: 20220415
  Receipt Date: 20220415
  Transmission Date: 20220721
  Serious: Yes (Death)
  Sender: FDA-Public Use
  Company Number: None

PATIENT
  Age: 81 Year
  Sex: Female

DRUGS (2)
  1. CLOPIDOGREL [Suspect]
     Active Substance: CLOPIDOGREL BISULFATE
     Indication: Thrombosis prophylaxis
     Dosage: UNIT DOSE: 75 MG, FREQUENCY TIME- 1 DAY,
     Route: 048
  2. ELIQUIS [Suspect]
     Active Substance: APIXABAN
     Indication: Thrombosis prophylaxis
     Dosage: UNIT DOSE: 5 MG, FREQUENCY TIME- 1 DAY,
     Route: 048

REACTIONS (3)
  - Haematemesis [Fatal]
  - Anaemia [Fatal]
  - Melaena [Fatal]

NARRATIVE: CASE EVENT DATE: 20220315
